FAERS Safety Report 20833944 (Version 1)
Quarter: 2022Q2

REPORT INFORMATION
  Report Type: Spontaneous
  Country: US (occurrence: US)
  Receive Date: 20220516
  Receipt Date: 20220516
  Transmission Date: 20220721
  Serious: No
  Sender: FDA-Public Use
  Company Number: US-PFIZER INC-202200708920

PATIENT
  Age: 33 Year
  Sex: Female

DRUGS (6)
  1. PAXLOVID [Suspect]
     Active Substance: NIRMATRELVIR\RITONAVIR
     Indication: COVID-19 treatment
     Dosage: UNK
     Dates: start: 20220503, end: 20220508
  2. XYLOMETAZOLINE HYDROCHLORIDE [Concomitant]
     Active Substance: XYLOMETAZOLINE HYDROCHLORIDE
     Dosage: UNK
  3. AMYLMETACRESOL\DICHLOROBENZYL ALCOHOL [Concomitant]
     Active Substance: AMYLMETACRESOL\DICHLOROBENZYL ALCOHOL
     Dosage: UNK
  4. ZINC [Concomitant]
     Active Substance: ZINC
     Dosage: UNK
  5. DEXTROSE\ELECTROLYTES NOS [Concomitant]
     Active Substance: DEXTROSE\ELECTROLYTES NOS
     Dosage: UNK
  6. TYLENOL [Concomitant]
     Active Substance: ACETAMINOPHEN
     Dosage: UNK
     Dates: start: 20220501, end: 20220503

REACTIONS (3)
  - Diarrhoea [Not Recovered/Not Resolved]
  - Dysgeusia [Not Recovered/Not Resolved]
  - Maternal exposure during pregnancy [Unknown]

NARRATIVE: CASE EVENT DATE: 20220503
